FAERS Safety Report 24455352 (Version 2)
Quarter: 2024Q4

REPORT INFORMATION
  Report Type: Report from Study
  Country: CA (occurrence: CA)
  Receive Date: 20241017
  Receipt Date: 20241018
  Transmission Date: 20250114
  Serious: No
  Sender: ROCHE
  Company Number: CA-ROCHE-3487865

PATIENT
  Sex: Female

DRUGS (9)
  1. RITUXAN [Suspect]
     Active Substance: RITUXIMAB
     Indication: Granulomatosis with polyangiitis
     Dosage: DAY 1,15
     Route: 042
     Dates: start: 20120807
  2. RITUXAN [Suspect]
     Active Substance: RITUXIMAB
     Dosage: DAY 1,DAY 15
     Route: 042
     Dates: start: 20160226
  3. PREDNISONE [Concomitant]
     Active Substance: PREDNISONE
  4. ACETAMINOPHEN [Concomitant]
     Active Substance: ACETAMINOPHEN
     Indication: Premedication
     Route: 048
     Dates: start: 20120807
  5. DIPHENHYDRAMINE [Concomitant]
     Active Substance: DIPHENHYDRAMINE
     Indication: Premedication
     Route: 048
     Dates: start: 20120807
  6. IMURAN [Concomitant]
     Active Substance: AZATHIOPRINE
  7. METHYLPREDNISOLONE [Concomitant]
     Active Substance: METHYLPREDNISOLONE
     Indication: Premedication
     Route: 042
     Dates: start: 20120807
  8. PROLIA [Concomitant]
     Active Substance: DENOSUMAB
  9. VENTOLIN [Concomitant]
     Active Substance: ALBUTEROL SULFATE
     Indication: Dyspnoea
     Dosage: 2 PUFFS GIVEN
     Route: 055
     Dates: start: 20210202

REACTIONS (1)
  - Granulomatosis with polyangiitis [Unknown]
